FAERS Safety Report 6878988-9 (Version None)
Quarter: 2010Q3

REPORT INFORMATION
  Report Type: 
  Country: None (occurrence: None)
  Receive Date: 20100728
  Receipt Date: 20100720
  Transmission Date: 20110219
  Serious: Yes (Hospitalization)
  Sender: FDA-Public Use
  Company Number: IT-BAYER-201027491GPV

PATIENT
  Age: 88 Year
  Sex: Female

DRUGS (5)
  1. NIMOTOP [Suspect]
     Indication: PRODUCT USED FOR UNKNOWN INDICATION
     Dosage: AS USED: 30/0.75 MG/ML
     Route: 048
     Dates: start: 20080501, end: 20100530
  2. ZESTORETIC [Suspect]
     Indication: HYPERTENSION
     Route: 048
     Dates: start: 20080501, end: 20100530
  3. ASPIRIN [Concomitant]
     Route: 048
  4. RABEPRAZOLE SODIUM [Concomitant]
  5. LORAZEPAM [Concomitant]

REACTIONS (3)
  - HYPOTENSION [None]
  - MALAISE [None]
  - SYNCOPE [None]
